FAERS Safety Report 10935755 (Version 1)
Quarter: 2015Q1

REPORT INFORMATION
  Report Type: Report from Study
  Country: SE (occurrence: SE)
  Receive Date: 20150320
  Receipt Date: 20150320
  Transmission Date: 20150721
  Serious: Yes (Hospitalization, Other)
  Sender: FDA-Public Use
  Company Number: SE-CELGENE-150-50794-14090060

PATIENT
  Age: 78 Year
  Sex: Male
  Weight: 69.2 kg

DRUGS (7)
  1. VIDAZA [Suspect]
     Active Substance: AZACITIDINE
     Indication: MYELODYSPLASTIC SYNDROME
     Route: 058
     Dates: start: 20140616, end: 20140915
  2. FLUCONAZOLE. [Concomitant]
     Active Substance: FLUCONAZOLE
     Indication: PROPHYLAXIS
     Route: 065
  3. ACICLOVIR [Concomitant]
     Active Substance: ACYCLOVIR
     Indication: PROPHYLAXIS
     Route: 065
  4. VIDAZA [Suspect]
     Active Substance: AZACITIDINE
     Route: 058
     Dates: start: 20140616, end: 20141010
  5. VIDAZA [Suspect]
     Active Substance: AZACITIDINE
     Route: 058
     Dates: start: 20140908
  6. VIDAZA [Suspect]
     Active Substance: AZACITIDINE
     Route: 058
     Dates: start: 20141124
  7. VIDAZA [Suspect]
     Active Substance: AZACITIDINE
     Dosage: 30 MILLIEQUIVALENTS
     Route: 058
     Dates: start: 20141006

REACTIONS (4)
  - Enterobacter sepsis [Recovered/Resolved]
  - Thrombosis [Recovered/Resolved]
  - Neutropenic infection [Recovered/Resolved]
  - Enterobacter sepsis [Recovered/Resolved]

NARRATIVE: CASE EVENT DATE: 20140815
